FAERS Safety Report 14355491 (Version 1)
Quarter: 2018Q1

REPORT INFORMATION
  Report Type: Spontaneous
  Country: JP (occurrence: JP)
  Receive Date: 20180105
  Receipt Date: 20180105
  Transmission Date: 20180509
  Serious: Yes (Other)
  Sender: FDA-Public Use
  Company Number: JP-GLAXOSMITHKLINE-JP2017JPN170795

PATIENT
  Sex: Male

DRUGS (7)
  1. BAYASPIRIN [Concomitant]
     Active Substance: ASPIRIN
     Dosage: UNK
     Dates: start: 201708, end: 201710
  2. ACOFIDE [Concomitant]
     Active Substance: ACOTIAMIDE HYDROCHLORIDE
     Dosage: UNK
  3. UBRETID [Concomitant]
     Active Substance: DISTIGMINE BROMIDE
     Dosage: UNK
  4. AVOLVE [Suspect]
     Active Substance: DUTASTERIDE
     Indication: BENIGN PROSTATIC HYPERPLASIA
     Dosage: UNK
     Route: 048
  5. URIEF [Concomitant]
     Active Substance: SILODOSIN
     Dosage: UNK
  6. MOSAPRIDE CITRATE [Concomitant]
     Active Substance: MOSAPRIDE CITRATE
     Dosage: UNK UNK, TID
     Dates: start: 201710
  7. CIMETIDINE [Concomitant]
     Active Substance: CIMETIDINE
     Dosage: UNK, TID
     Dates: start: 201710

REACTIONS (5)
  - Decreased appetite [Recovering/Resolving]
  - Weight decreased [Unknown]
  - Chronic gastritis [Unknown]
  - Helicobacter infection [Unknown]
  - Blood pressure fluctuation [Unknown]
